FAERS Safety Report 14417449 (Version 1)
Quarter: 2018Q1

REPORT INFORMATION
  Report Type: Spontaneous
  Country: US (occurrence: US)
  Receive Date: 20180122
  Receipt Date: 20180122
  Transmission Date: 20180509
  Serious: Yes (Hospitalization)
  Sender: FDA-Public Use
  Company Number: US-BAYER-2018-005003

PATIENT
  Age: 18 Year
  Sex: Male
  Weight: 108.98 kg

DRUGS (7)
  1. XARELTO [Concomitant]
     Active Substance: RIVAROXABAN
  2. BAYER LOW DOSE [Suspect]
     Active Substance: ASPIRIN
     Indication: ANTICOAGULANT THERAPY
  3. LIPITOR [Concomitant]
     Active Substance: ATORVASTATIN CALCIUM
  4. BAYER LOW DOSE [Suspect]
     Active Substance: ASPIRIN
     Indication: PROPHYLAXIS
     Dosage: 1 DF, QD
     Route: 048
     Dates: start: 20170801, end: 20171211
  5. PROPAFENONE HYDROCHLORIDE. [Concomitant]
     Active Substance: PROPAFENONE HYDROCHLORIDE
  6. METOPROLOL. [Concomitant]
     Active Substance: METOPROLOL
  7. BAYER LOW DOSE [Suspect]
     Active Substance: ASPIRIN
     Indication: CARDIAC DISORDER
     Dosage: 1 DF, QD
     Route: 048
     Dates: start: 1965, end: 201607

REACTIONS (6)
  - Blood urine present [Recovered/Resolved]
  - Hospitalisation [None]
  - Product use in unapproved indication [Unknown]
  - Off label use [Unknown]
  - Epistaxis [Recovered/Resolved]
  - Product use in unapproved indication [Unknown]

NARRATIVE: CASE EVENT DATE: 1965
